FAERS Safety Report 20336578 (Version 3)
Quarter: 2022Q1

REPORT INFORMATION
  Report Type: Spontaneous
  Country: DE (occurrence: None)
  Receive Date: 20220114
  Receipt Date: 20220208
  Transmission Date: 20220423
  Serious: Yes (Other)
  Sender: FDA-Public Use
  Company Number: 2022A011605

PATIENT
  Age: 22768 Day
  Sex: Male
  Weight: 110 kg

DRUGS (2)
  1. XIGDUO XR [Suspect]
     Active Substance: DAPAGLIFLOZIN PROPANEDIOL\METFORMIN HYDROCHLORIDE
     Indication: Type 2 diabetes mellitus
     Dosage: 5/1000 MG DAILY
     Route: 048
     Dates: start: 20210902
  2. NICOTINE [Concomitant]
     Active Substance: NICOTINE

REACTIONS (5)
  - General physical condition abnormal [Recovered/Resolved]
  - Urine ketone body present [Unknown]
  - Glucose urine present [Unknown]
  - Headache [Unknown]
  - Pollakiuria [Recovered/Resolved]

NARRATIVE: CASE EVENT DATE: 20220106
